FAERS Safety Report 21349217 (Version 1)
Quarter: 2022Q3

REPORT INFORMATION
  Report Type: Spontaneous
  Country: DE (occurrence: DE)
  Receive Date: 20220919
  Receipt Date: 20220919
  Transmission Date: 20221027
  Serious: Yes (Hospitalization)
  Sender: FDA-Public Use
  Company Number: DE-NOVARTISPH-NVSC2022DE210142

PATIENT
  Age: 77 Year
  Sex: Female

DRUGS (9)
  1. PREDNISOLONE [Suspect]
     Active Substance: PREDNISOLONE
     Indication: Product used for unknown indication
     Dosage: 20 MG, QD (20 MG, 1-0-0-0)
     Route: 048
  2. ATORVASTATIN [Concomitant]
     Active Substance: ATORVASTATIN
     Indication: Product used for unknown indication
     Dosage: 20 MG, QD (20 MG, 0-0-1-0)
     Route: 048
  3. EDOXABAN [Concomitant]
     Active Substance: EDOXABAN
     Indication: Product used for unknown indication
     Dosage: 30 MG, QD (30 MG, 1-0-0-0)
     Route: 048
  4. DRONEDARONE [Concomitant]
     Active Substance: DRONEDARONE
     Indication: Product used for unknown indication
     Dosage: 400 MG, BID (400 MG, 1-0-1-0)
     Route: 048
  5. BISOPROLOL [Concomitant]
     Active Substance: BISOPROLOL
     Indication: Product used for unknown indication
     Dosage: 2.5 MG, BID (2.5 MG, 1-0-1-0)
     Route: 048
  6. VALPROAT 1A PHARMA [Concomitant]
     Indication: Product used for unknown indication
     Dosage: UNK, QD 500|500 MG, 0-0-2-0
     Route: 048
  7. LAMOTRIGINE [Concomitant]
     Active Substance: LAMOTRIGINE
     Indication: Product used for unknown indication
     Dosage: 100 MG, BID 0.5-0-1-0
     Route: 048
  8. LERCANIDIPINE [Concomitant]
     Active Substance: LERCANIDIPINE
     Indication: Product used for unknown indication
     Dosage: 10 MG, QD 1-0-0-0
     Route: 048
  9. PANTOPRAZOLE [Concomitant]
     Active Substance: PANTOPRAZOLE
     Indication: Product used for unknown indication
     Dosage: 40 MG, QD (40 MG, 1-0-0-0)
     Route: 048

REACTIONS (2)
  - Cardiac discomfort [Unknown]
  - Tachycardia [Unknown]
